FAERS Safety Report 19014360 (Version 1)
Quarter: 2021Q1

REPORT INFORMATION
  Report Type: Spontaneous
  Country: US (occurrence: US)
  Receive Date: 20210316
  Receipt Date: 20210316
  Transmission Date: 20210420
  Serious: No
  Sender: FDA-Public Use
  Company Number: US-BAYER-2021-105496

PATIENT
  Age: 67 Year
  Sex: Male

DRUGS (10)
  1. VITAMIN B3 [Concomitant]
     Active Substance: NIACIN
  2. ELIQUIS [Concomitant]
     Active Substance: APIXABAN
  3. MIRALAX [Suspect]
     Active Substance: POLYETHYLENE GLYCOL 3350
     Indication: GASTROINTESTINAL DISORDER
     Dosage: 1 DF, QD
     Route: 048
  4. METAPROTERENOL [ORCIPRENALINE] [Concomitant]
  5. SIMVASTATIN. [Concomitant]
     Active Substance: SIMVASTATIN
  6. DONEPEZIL. [Concomitant]
     Active Substance: DONEPEZIL
  7. BABY ASPIRIN [Concomitant]
     Active Substance: ASPIRIN
  8. FINASTERIDE. [Concomitant]
     Active Substance: FINASTERIDE
  9. ZOLOFT [Concomitant]
     Active Substance: SERTRALINE HYDROCHLORIDE
  10. CLONAZEPAM. [Concomitant]
     Active Substance: CLONAZEPAM

REACTIONS (1)
  - Incorrect product administration duration [Unknown]
